FAERS Safety Report 18964337 (Version 1)
Quarter: 2021Q1

REPORT INFORMATION
  Report Type: Spontaneous
  Country: ES (occurrence: ES)
  Receive Date: 20210303
  Receipt Date: 20210303
  Transmission Date: 20210420
  Serious: Yes (Hospitalization, Other)
  Sender: FDA-Public Use
  Company Number: ES-SA-2021SA060964

PATIENT
  Age: 44 Year
  Sex: Female

DRUGS (1)
  1. VANDETANIB. [Suspect]
     Active Substance: VANDETANIB
     Indication: MEDULLARY THYROID CANCER
     Dosage: UNK
     Route: 048

REACTIONS (9)
  - Acute kidney injury [Recovered/Resolved]
  - Capillary leak syndrome [Not Recovered/Not Resolved]
  - Intra-abdominal fluid collection [Recovered/Resolved]
  - Tubulointerstitial nephritis [Recovered/Resolved]
  - Oedematous kidney [Not Recovered/Not Resolved]
  - Nephropathy toxic [Unknown]
  - Biopsy kidney abnormal [Recovered/Resolved]
  - Waist circumference increased [Recovering/Resolving]
  - Proteinuria [Recovering/Resolving]
